FAERS Safety Report 20508795 (Version 3)
Quarter: 2022Q3

REPORT INFORMATION
  Report Type: Spontaneous
  Country: FI (occurrence: FI)
  Receive Date: 20220223
  Receipt Date: 20220728
  Transmission Date: 20221026
  Serious: Yes (Death, Hospitalization, Other)
  Sender: FDA-Public Use
  Company Number: FI-PFIZER INC-202200262993

PATIENT
  Age: 19 Year
  Sex: Male

DRUGS (4)
  1. LYRICA [Interacting]
     Active Substance: PREGABALIN
     Dosage: UNK
  2. SUBUTEX [Interacting]
     Active Substance: BUPRENORPHINE HYDROCHLORIDE
     Dosage: UNK
     Route: 042
  3. AMPHETAMINE [Interacting]
     Active Substance: AMPHETAMINE
     Dosage: UNK
  4. CANNABIS SATIVA SUBSP. INDICA TOP [Suspect]
     Active Substance: CANNABIS SATIVA SUBSP. INDICA TOP
     Dosage: UNK

REACTIONS (6)
  - Myelopathy [Fatal]
  - Rhabdomyolysis [Fatal]
  - Drug interaction [Fatal]
  - Compartment syndrome [Not Recovered/Not Resolved]
  - Substance abuse [Not Recovered/Not Resolved]
  - Somnolence [Unknown]
